FAERS Safety Report 5351478-0 (Version None)
Quarter: 2007Q2

REPORT INFORMATION
  Report Type: 
  Country: None (occurrence: None)
  Receive Date: 20070521
  Receipt Date: 20070306
  Transmission Date: 20071010
  Serious: No
  Sender: FDA-Public Use
  Company Number: WAES 0701USA00854

PATIENT
  Age: 63 Year
  Sex: Female
  Weight: 64.4108 kg

DRUGS (2)
  1. JANUVIA [Suspect]
     Indication: DIABETES MELLITUS NON-INSULIN-DEPENDENT
     Dosage: 100 MG;DAILY;PO
     Route: 048
     Dates: start: 20061215, end: 20061201
  2. ACTOS [Concomitant]

REACTIONS (3)
  - NASAL CONGESTION [None]
  - PHARYNGOLARYNGEAL PAIN [None]
  - RHINORRHOEA [None]
